FAERS Safety Report 7608412-X (Version None)
Quarter: 2011Q3

REPORT INFORMATION
  Report Type: 
  Country: None (occurrence: None)
  Receive Date: 20110714
  Receipt Date: 20110707
  Transmission Date: 20111222
  Serious: Yes (Other)
  Sender: FDA-Public Use
  Company Number: CN-GENZYME-THYM-1002593

PATIENT
  Age: 38 Year
  Sex: Male

DRUGS (24)
  1. THYMOGLOBULIN [Suspect]
     Indication: BONE MARROW CONDITIONING REGIMEN
     Dosage: 2.5 MG/KG, QD
     Route: 042
  2. CYTARABINE [Concomitant]
     Indication: BONE MARROW CONDITIONING REGIMEN
     Dosage: UNK
     Route: 065
  3. GRANULOCYTE COLONY STIMULATING FACTOR [Concomitant]
     Indication: HAEMATOPOIETIC STEM CELL MOBILISATION
     Dosage: UNK
     Route: 058
  4. SODIUM BICARBONATE [Concomitant]
     Indication: PH URINE
     Route: 065
  5. AMINO ACIDS NOS [Concomitant]
     Indication: PROPHYLAXIS
     Route: 065
  6. THYMOGLOBULIN [Suspect]
     Indication: PROPHYLAXIS AGAINST GRAFT VERSUS HOST DISEASE
  7. CILASTATIN W [Concomitant]
     Indication: PROPHYLAXIS
     Dosage: UNK
     Route: 065
  8. CYCLOSPORINE [Concomitant]
     Indication: PROPHYLAXIS AGAINST GRAFT VERSUS HOST DISEASE
     Route: 042
  9. METHOTREXATE [Concomitant]
     Indication: PROPHYLAXIS AGAINST GRAFT VERSUS HOST DISEASE
     Dosage: 15 MG/M2, ONCE
     Route: 042
  10. METHOTREXATE [Concomitant]
     Dosage: 30 MG/M2, UNK
     Route: 042
  11. HEPARIN [Concomitant]
     Indication: PROPHYLAXIS
     Dosage: 2500 U, QD
     Route: 065
  12. CYCLOPHOSPHAMIDE [Concomitant]
     Indication: BONE MARROW CONDITIONING REGIMEN
     Dosage: 50 MG/KG, QD
     Route: 042
  13. NEUMEGA [Concomitant]
     Indication: PROPHYLAXIS AGAINST GRAFT VERSUS HOST DISEASE
     Dosage: 1.5 MG, QD
     Route: 058
  14. GANCICLOVIR [Concomitant]
     Indication: PROPHYLAXIS
     Dosage: UNK
     Route: 065
  15. SEMUSTINE CAP [Concomitant]
     Indication: BONE MARROW CONDITIONING REGIMEN
  16. GRANULOCYTE COLONY STIMULATING FACTOR [Concomitant]
     Dosage: 5 MCG/KG, QD
     Route: 065
  17. SALVIA MILTIORRHIZA [Concomitant]
     Indication: PROPHYLAXIS
     Dosage: 250 ML, QD
     Route: 065
  18. BUSULFAN [Concomitant]
     Indication: BONE MARROW CONDITIONING REGIMEN
  19. MESNA [Concomitant]
     Indication: PROPHYLAXIS
     Dosage: UNK
     Route: 065
  20. IMMUNE GLOBULIN NOS [Concomitant]
     Indication: PROPHYLAXIS
     Dosage: UNK
     Route: 042
  21. CYCLOSPORINE [Concomitant]
     Route: 048
  22. MYCOPHENOLATE MEFETIL [Concomitant]
     Indication: PROPHYLAXIS AGAINST GRAFT VERSUS HOST DISEASE
     Dosage: 0.5 G, BID
     Route: 048
  23. ACYCLOVIR [Concomitant]
     Indication: INFECTION PROPHYLAXIS
     Dosage: UNK
     Route: 042
  24. FAT EMULSIONS [Concomitant]
     Indication: PROPHYLAXIS
     Route: 065

REACTIONS (1)
  - ACUTE GRAFT VERSUS HOST DISEASE [None]
